FAERS Safety Report 9172044 (Version 1)
Quarter: 2013Q1

REPORT INFORMATION
  Report Type: Spontaneous
  Country: CH (occurrence: CH)
  Receive Date: 20130319
  Receipt Date: 20130319
  Transmission Date: 20140127
  Serious: Yes (Hospitalization, Other)
  Sender: FDA-Public Use
  Company Number: CH-009507513-1303CHE007218

PATIENT
  Age: 2 Year
  Sex: Male

DRUGS (4)
  1. REMERON [Suspect]
     Dosage: UNK, ONCE
     Route: 048
     Dates: start: 20130204, end: 20130204
  2. DEXTROMETHORPHAN [Suspect]
     Dosage: UNK, ONCE
     Route: 048
     Dates: start: 20130204, end: 20130204
  3. IBUPROFEN [Suspect]
     Dosage: UNK, ONCE
     Route: 048
     Dates: start: 20130204, end: 20130204
  4. CAFFEINE [Suspect]
     Dosage: UNK, ONCE, FORMULATION: FLUID.
     Route: 048
     Dates: start: 20130204, end: 20130204

REACTIONS (7)
  - Coma [Recovered/Resolved]
  - Ataxia [Recovered/Resolved]
  - Hyporeflexia [Recovered/Resolved]
  - Miosis [Recovered/Resolved]
  - Respiratory acidosis [Recovered/Resolved]
  - Accidental exposure to product by child [Unknown]
  - Overdose [Unknown]
